FAERS Safety Report 18062450 (Version 1)
Quarter: 2020Q3

REPORT INFORMATION
  Report Type: Spontaneous
  Country: CA (occurrence: CA)
  Receive Date: 20200724
  Receipt Date: 20200724
  Transmission Date: 20201103
  Serious: Yes (Life-Threatening, Hospitalization)
  Sender: FDA-Public Use
  Company Number: CA-BAXTER-2020BAX014851

PATIENT
  Age: 42 Year
  Sex: Female

DRUGS (10)
  1. PROCYTOX (CYCLOPHOSPHAMIDE) 2000MG/VIAL [Suspect]
     Active Substance: CYCLOPHOSPHAMIDE
     Dosage: DOSAGE FORM: NOT SPECIFIED
     Route: 065
  2. MYCOPHENOLATE MOFETIL. [Suspect]
     Active Substance: MYCOPHENOLATE MOFETIL
     Indication: ORGANISING PNEUMONIA
     Dosage: DOSAGE FORM: NOT SPECIFIED
     Route: 065
  3. PROCYTOX (CYCLOPHOSPHAMIDE) 2000MG/VIAL [Suspect]
     Active Substance: CYCLOPHOSPHAMIDE
     Route: 065
  4. TRASTUZUMAB. [Suspect]
     Active Substance: TRASTUZUMAB
     Indication: BREAST CANCER
     Route: 065
  5. PREDNISONE. [Suspect]
     Active Substance: PREDNISONE
     Indication: ORGANISING PNEUMONIA
     Dosage: DOSAGE FORM: NOT SPECIFIED
     Route: 065
  6. PROCYTOX (CYCLOPHOSPHAMIDE) 2000MG/VIAL [Suspect]
     Active Substance: CYCLOPHOSPHAMIDE
     Indication: BREAST CANCER
     Route: 065
  7. DOCETAXEL. [Suspect]
     Active Substance: DOCETAXEL
     Dosage: DOSAGE FORM: SOLUTION INTRAVENOUS
     Route: 065
  8. TRASTUZUMAB. [Suspect]
     Active Substance: TRASTUZUMAB
     Route: 065
  9. DOCETAXEL. [Suspect]
     Active Substance: DOCETAXEL
     Indication: BREAST CANCER
     Route: 042
  10. PREDNISONE. [Suspect]
     Active Substance: PREDNISONE
     Route: 065

REACTIONS (10)
  - Hypoxia [Unknown]
  - Biopsy lung abnormal [Unknown]
  - Multifocal micronodular pneumocyte hyperplasia [Unknown]
  - Computerised tomogram thorax abnormal [Unknown]
  - Therapeutic response decreased [Unknown]
  - Respiratory failure [Unknown]
  - Product use issue [Unknown]
  - Organising pneumonia [Unknown]
  - Pulmonary oedema [Unknown]
  - Bronchial polyp [Unknown]
